FAERS Safety Report 12997912 (Version 2)
Quarter: 2017Q1

REPORT INFORMATION
  Report Type: Spontaneous
  Country: US (occurrence: US)
  Receive Date: 20161205
  Receipt Date: 20170302
  Transmission Date: 20170428
  Serious: Yes (Other)
  Sender: FDA-Public Use
  Company Number: US-THE MEDICINES COMPANY-US-MDCO-16-00465

PATIENT
  Age: 40 Year
  Sex: Female

DRUGS (2)
  1. ORBACTIV [Suspect]
     Active Substance: ORITAVANCIN
     Indication: BREAST INFLAMMATION
     Route: 041
     Dates: start: 20161028, end: 20161028
  2. ZYVOX [Concomitant]
     Active Substance: LINEZOLID
     Indication: BREAST INFLAMMATION
     Route: 048
     Dates: end: 20161024

REACTIONS (4)
  - Nausea [Recovered/Resolved]
  - Anaphylactic reaction [Recovered/Resolved]
  - Off label use [Recovered/Resolved]
  - Headache [Recovered/Resolved]

NARRATIVE: CASE EVENT DATE: 20161028
